FAERS Safety Report 7237496-6 (Version None)
Quarter: 2011Q1

REPORT INFORMATION
  Report Type: 
  Country: None (occurrence: None)
  Receive Date: 20110113
  Receipt Date: 20110104
  Transmission Date: 20110831
  Serious: Yes (Hospitalization, Other)
  Sender: FDA-Public Use
  Company Number: TPA2010A03859

PATIENT
  Age: 48 Year
  Sex: Female
  Weight: 133 kg

DRUGS (2)
  1. PREVACID [Suspect]
     Indication: HELICOBACTER INFECTION
     Dosage: 30 MG, 2 IN 1 D
  2. PREVACID [Suspect]
     Indication: PEPTIC ULCER
     Dosage: 30 MG, 2 IN 1 D

REACTIONS (3)
  - HYPOCALCAEMIA [None]
  - CONVULSION [None]
  - HYPOPARATHYROIDISM [None]
